FAERS Safety Report 22350017 (Version 1)
Quarter: 2023Q2

REPORT INFORMATION
  Report Type: Spontaneous
  Country: US (occurrence: US)
  Receive Date: 20230522
  Receipt Date: 20230522
  Transmission Date: 20230722
  Serious: No
  Sender: FDA-Public Use
  Company Number: US-SA-SAC20230519000545

PATIENT
  Age: 33 Year
  Sex: Female

DRUGS (1)
  1. DUPIXENT [Suspect]
     Active Substance: DUPILUMAB
     Indication: Dermatitis atopic
     Dosage: 300MG , FREQUENCY: OTHER
     Route: 058
     Dates: start: 202302

REACTIONS (4)
  - Periorbital inflammation [Unknown]
  - Blepharitis [Unknown]
  - Injection site pruritus [Unknown]
  - Injection site bruising [Unknown]
